FAERS Safety Report 7343059-4 (Version None)
Quarter: 2011Q1

REPORT INFORMATION
  Report Type: 
  Country: None (occurrence: None)
  Receive Date: 20110310
  Receipt Date: 20110301
  Transmission Date: 20110831
  Serious: Yes (Other)
  Sender: FDA-Public Use
  Company Number: US-BAYER-2011-019383

PATIENT
  Age: 35 Year
  Sex: Female

DRUGS (4)
  1. ZITHROMAX [Concomitant]
     Dosage: PRIOR TO AVELOX INTAKE
  2. PHENERGAN EXPECTORANT W/ CODEINE [Concomitant]
     Dosage: PRIOR TO AVELOX
  3. AVELOX [Suspect]
     Indication: COUGH
     Dosage: 400 MG, QD
     Route: 048
     Dates: start: 20101219, end: 20101225
  4. AVELOX [Suspect]
     Indication: RESPIRATORY TRACT INFECTION
     Dosage: 400 MG, QD
     Route: 048
     Dates: start: 20101220, end: 20101226

REACTIONS (4)
  - PHYSICAL DISABILITY [None]
  - TENDON RUPTURE [None]
  - MUSCULOSKELETAL PAIN [None]
  - JOINT EFFUSION [None]
